FAERS Safety Report 8985148 (Version 3)
Quarter: 2013Q1

REPORT INFORMATION
  Report Type: Spontaneous
  Country: DE (occurrence: DE)
  Receive Date: 20121226
  Receipt Date: 20130121
  Transmission Date: 20140127
  Serious: Yes (Hospitalization, Other)
  Sender: FDA-Public Use
  Company Number: PHHY2012DE117927

PATIENT
  Sex: Female

DRUGS (2)
  1. LEPONEX [Suspect]
     Indication: SCHIZOPHRENIA
     Dosage: 300 MG, QD
     Route: 048
     Dates: start: 2010
  2. DYSURGAL [Concomitant]
     Dosage: 0.5 MG, UNK
     Route: 048

REACTIONS (1)
  - Breast cancer [Recovering/Resolving]
